FAERS Safety Report 6017496-4 (Version None)
Quarter: 2008Q4

REPORT INFORMATION
  Report Type: 
  Country: None (occurrence: None)
  Receive Date: 20081223
  Receipt Date: 20080307
  Transmission Date: 20090506
  Serious: No
  Sender: FDA-Public Use
  Company Number: US-BRISTOL-MYERS SQUIBB COMPANY-14107353

PATIENT
  Age: 55 Year
  Sex: Female
  Weight: 136 kg

DRUGS (17)
  1. CARDIOLITE [Suspect]
     Route: 042
  2. PERSANTINE [Suspect]
     Route: 042
  3. AMINOPHYLLINE [Suspect]
     Route: 042
  4. TRAMADOL [Concomitant]
  5. PRILOSEC [Concomitant]
  6. LOVAZA [Concomitant]
  7. BYETTA [Concomitant]
  8. ACTOS [Concomitant]
  9. METFORMIN HCL [Concomitant]
  10. INDAPAMIDE [Concomitant]
  11. BENAZEPRIL HYDROCHLORIDE [Concomitant]
  12. DYNACIRC [Concomitant]
  13. MULTI-VITAMIN [Concomitant]
  14. ESTER-C [Concomitant]
  15. CHROMIUM PICOLINATE [Concomitant]
  16. CALCIUM [Concomitant]
  17. CADUET [Concomitant]

REACTIONS (5)
  - FEELING ABNORMAL [None]
  - NAUSEA [None]
  - PRURITUS [None]
  - RASH [None]
  - VOMITING [None]
